FAERS Safety Report 11150718 (Version 2)
Quarter: 2015Q2

REPORT INFORMATION
  Report Type: Report from Study
  Country: FR (occurrence: FR)
  Receive Date: 20150601
  Receipt Date: 20150608
  Transmission Date: 20150821
  Serious: Yes (Hospitalization)
  Sender: FDA-Public Use
  Company Number: FR-ROCHE-1564390

PATIENT
  Age: 74 Year
  Sex: Male
  Weight: 80 kg

DRUGS (3)
  1. LENALIDOMIDE [Suspect]
     Active Substance: LENALIDOMIDE
     Indication: B-CELL LYMPHOMA
     Dosage: DATE OF LAST ADMINISTRATION BEFORE SAE: 09/APR/2015?INDUCTION CYCLE 1.?PERMANENTLY STOPPED ON 28/APR
     Route: 048
     Dates: start: 20150320, end: 20150428
  2. OBINUTUZUMAB [Suspect]
     Active Substance: OBINUTUZUMAB
     Indication: B-CELL LYMPHOMA
     Dosage: DATE OF LAST DOSE PRIOR TO SAE: 03/APR/2015?INDUCTION CYCLE 1.?PERMANENTLY STOPPED ON 28/APR/2015.
     Route: 065
     Dates: start: 20150327, end: 20150428
  3. AMOXYCILLIN [Concomitant]
     Active Substance: AMOXICILLIN
     Indication: PROPHYLAXIS
     Route: 065
     Dates: start: 20150410

REACTIONS (2)
  - Sepsis [Recovered/Resolved]
  - Colitis [Recovered/Resolved]

NARRATIVE: CASE EVENT DATE: 20150413
